FAERS Safety Report 19959774 (Version 2)
Quarter: 2021Q4

REPORT INFORMATION
  Report Type: Report from Study
  Country: US (occurrence: US)
  Receive Date: 20211015
  Receipt Date: 20211026
  Transmission Date: 20220303
  Serious: Yes (Hospitalization)
  Sender: FDA-Public Use
  Company Number: US-GLAXOSMITHKLINE-US2021GSK208488

PATIENT
  Age: 19 Year
  Sex: Female
  Weight: 62.1 kg

DRUGS (14)
  1. BELANTAMAB MAFODOTIN [Suspect]
     Active Substance: BELANTAMAB MAFODOTIN
     Indication: Leukaemia
     Dosage: 157 MG, SINGLE
     Route: 042
     Dates: start: 20210510, end: 20210510
  2. BELANTAMAB MAFODOTIN [Suspect]
     Active Substance: BELANTAMAB MAFODOTIN
     Indication: Diffuse large B-cell lymphoma
  3. OMEPRAZOLE [Concomitant]
     Active Substance: OMEPRAZOLE
  4. SCOPOLAMINE [Concomitant]
     Active Substance: SCOPOLAMINE
  5. MELATONIN [Concomitant]
     Active Substance: MELATONIN
  6. CYPROHEPTADINE [Concomitant]
     Active Substance: CYPROHEPTADINE
  7. ALLOPURINOL [Concomitant]
     Active Substance: ALLOPURINOL
  8. SULFAMETHOXAZOLE [Concomitant]
     Active Substance: SULFAMETHOXAZOLE
  9. ONDANSETRON [Concomitant]
     Active Substance: ONDANSETRON
  10. SENNA [Concomitant]
     Active Substance: SENNA LEAF\SENNOSIDES\SENNOSIDES A AND B
  11. BISACODYL [Concomitant]
     Active Substance: BISACODYL
  12. CHOLECALCIFEROL [Concomitant]
     Active Substance: CHOLECALCIFEROL
  13. ENOXAPARIN [Concomitant]
     Active Substance: ENOXAPARIN
  14. RASBURICASE [Concomitant]
     Active Substance: RASBURICASE
     Dosage: UNK

REACTIONS (8)
  - Infusion related reaction [Recovered/Resolved]
  - Chills [Recovered/Resolved]
  - Hypotension [Unknown]
  - Systemic inflammatory response syndrome [Unknown]
  - Ischaemic hepatitis [Unknown]
  - Liver function test abnormal [Unknown]
  - Blood lactic acid increased [Unknown]
  - Tumour lysis syndrome [Recovered/Resolved]

NARRATIVE: CASE EVENT DATE: 20211005
